FAERS Safety Report 12439452 (Version 1)
Quarter: 2016Q2

REPORT INFORMATION
  Report Type: Spontaneous
  Country: ES (occurrence: ES)
  Receive Date: 20160606
  Receipt Date: 20160606
  Transmission Date: 20160815
  Serious: Yes (Other)
  Sender: FDA-Public Use
  Company Number: ES-PFIZER INC-2016282312

PATIENT
  Age: 7 Year
  Sex: Male
  Weight: 13 kg

DRUGS (2)
  1. GENOTONORM MINIQUICK [Suspect]
     Active Substance: SOMATROPIN
     Indication: GROWTH RETARDATION
     Dosage: 0.4 MG, 1X/DAY
     Dates: start: 201605
  2. SINGULAIR [Concomitant]
     Active Substance: MONTELUKAST SODIUM
     Indication: ADENOIDAL HYPERTROPHY

REACTIONS (2)
  - Fatigue [Unknown]
  - Petit mal epilepsy [Unknown]

NARRATIVE: CASE EVENT DATE: 20160530
